FAERS Safety Report 6153871-5 (Version None)
Quarter: 2009Q2

REPORT INFORMATION
  Report Type: 
  Country: None (occurrence: None)
  Receive Date: 20090414
  Receipt Date: 20090409
  Transmission Date: 20091009
  Serious: Yes (Death, Hospitalization)
  Sender: FDA-Public Use
  Company Number: US-JNJFOC-20080401469

PATIENT
  Sex: Male
  Weight: 76.2 kg

DRUGS (2)
  1. FENTANYL TRANSDERMAL SYSTEM [Suspect]
     Indication: RHEUMATOID ARTHRITIS
     Route: 062
  2. FENTANYL TRANSDERMAL SYSTEM [Suspect]
     Indication: PAIN
     Route: 062

REACTIONS (12)
  - APPLICATION SITE ERYTHEMA [None]
  - ASTHENIA [None]
  - COMA [None]
  - DEATH [None]
  - DEPRESSION [None]
  - DEVICE LEAKAGE [None]
  - FALL [None]
  - GAIT DISTURBANCE [None]
  - INCONTINENCE [None]
  - SLEEP TALKING [None]
  - UNEVALUABLE EVENT [None]
  - WITHDRAWAL SYNDROME [None]
